FAERS Safety Report 19686333 (Version 1)
Quarter: 2021Q3

REPORT INFORMATION
  Report Type: Spontaneous
  Country: AU (occurrence: AU)
  Receive Date: 20210811
  Receipt Date: 20210811
  Transmission Date: 20211014
  Serious: Yes (Other)
  Sender: FDA-Public Use
  Company Number: AU-ANIPHARMA-2021-AU-000252

PATIENT
  Age: 43 Year
  Sex: Female

DRUGS (14)
  1. LAMOTRIGINE. [Suspect]
     Active Substance: LAMOTRIGINE
     Dosage: 75 MG Q12H
     Route: 065
  2. RIZATRIPTAN. [Suspect]
     Active Substance: RIZATRIPTAN
     Dosage: 10 MG PRN
     Route: 065
  3. AMITRIPTYLINE HYDROCHLORIDE. [Suspect]
     Active Substance: AMITRIPTYLINE HYDROCHLORIDE
     Route: 065
  4. CANDESARTAN. [Suspect]
     Active Substance: CANDESARTAN
     Indication: PRODUCT USED FOR UNKNOWN INDICATION
     Route: 048
  5. PROMETHAZINE [Suspect]
     Active Substance: PROMETHAZINE HYDROCHLORIDE
     Dosage: 25 MG PRN
     Route: 065
  6. CHLORPROMAZINE. [Suspect]
     Active Substance: CHLORPROMAZINE
     Route: 065
  7. PREDNISOLONE. [Suspect]
     Active Substance: PREDNISOLONE
     Route: 065
  8. TOPIRAMATE. [Suspect]
     Active Substance: TOPIRAMATE
     Dosage: 100 MG Q12H
     Route: 065
  9. CLONIDINE. [Suspect]
     Active Substance: CLONIDINE
     Route: 065
  10. AIMOVIG [Suspect]
     Active Substance: ERENUMAB-AOOE
     Dosage: 70 MG Q4WK
     Route: 065
  11. BOTOX [Suspect]
     Active Substance: ONABOTULINUMTOXINA
     Route: 065
  12. KETAMINE [Suspect]
     Active Substance: KETAMINE
     Dosage: UNKNOWN DOSE TOTAL
     Route: 065
  13. DESVENLAFAXINE SUCCINATE. [Suspect]
     Active Substance: DESVENLAFAXINE SUCCINATE
     Dosage: 50 MG DAILY
     Route: 065
  14. FEXOFENADINE HYDROCHLORIDE. [Suspect]
     Active Substance: FEXOFENADINE HYDROCHLORIDE
     Dosage: 180 MG DAILY
     Route: 065

REACTIONS (8)
  - Nausea [Unknown]
  - Photophobia [Unknown]
  - Somnolence [Unknown]
  - Dizziness [Unknown]
  - Quality of life decreased [Unknown]
  - Mental impairment [Unknown]
  - Tinnitus [Unknown]
  - Migraine [Unknown]
